FAERS Safety Report 11159120 (Version 1)
Quarter: 2015Q2

REPORT INFORMATION
  Report Type: Spontaneous
  Country: US (occurrence: US)
  Receive Date: 20150603
  Receipt Date: 20150603
  Transmission Date: 20150821
  Serious: No
  Sender: FDA-Public Use
  Company Number: US-ASTRAZENECA-2015SE47552

PATIENT
  Sex: Male
  Weight: 115.2 kg

DRUGS (26)
  1. BYETTA [Suspect]
     Active Substance: EXENATIDE
     Indication: TYPE 2 DIABETES MELLITUS
     Route: 058
  2. BENAZEPRIL [Concomitant]
     Active Substance: BENAZEPRIL\BENAZEPRIL HYDROCHLORIDE
     Indication: HYPERTENSION
  3. FLUOXETINE [Concomitant]
     Active Substance: FLUOXETINE\FLUOXETINE HYDROCHLORIDE
     Indication: BIPOLAR DISORDER
  4. KROGER COMPLETE VITAMIN [Concomitant]
  5. SISTINE DROPS [Concomitant]
     Indication: DIABETES MELLITUS
  6. OMEGA FISH OIL [Concomitant]
     Active Substance: FISH OIL\OMEGA-3 FATTY ACIDS
  7. BYETTA [Suspect]
     Active Substance: EXENATIDE
     Indication: TYPE 2 DIABETES MELLITUS
     Route: 058
     Dates: end: 2010
  8. GABAPENTIN. [Concomitant]
     Active Substance: GABAPENTIN
     Indication: BIPOLAR DISORDER
  9. VITAMIN B12 [Concomitant]
     Active Substance: CYANOCOBALAMIN
  10. VITAMIN D 3 [Concomitant]
  11. MULTIVITAMIN [Concomitant]
     Active Substance: VITAMINS
  12. MULTIMINERAL SUPPLEMENT [Concomitant]
  13. BUPROPION XL [Concomitant]
     Active Substance: BUPROPION
     Indication: BIPOLAR DISORDER
  14. LEVEMIR [Concomitant]
     Active Substance: INSULIN DETEMIR
     Indication: DIABETES MELLITUS
  15. TEMAZEPAM. [Concomitant]
     Active Substance: TEMAZEPAM
     Indication: SLEEP DISORDER
  16. ZYRTEC [Concomitant]
     Active Substance: CETIRIZINE HYDROCHLORIDE
  17. CYSTANENE GEL [Concomitant]
     Indication: DRY EYE
  18. LIOTHYRONINE [Concomitant]
     Active Substance: LIOTHYRONINE
  19. ASPIRIN. [Concomitant]
     Active Substance: ASPIRIN
     Indication: CARDIOVASCULAR EVENT PROPHYLAXIS
  20. LEVOTHYROXINE [Concomitant]
     Active Substance: LEVOTHYROXINE
     Indication: THYROID DISORDER
     Route: 048
  21. AMLODIPINE [Concomitant]
     Active Substance: AMLODIPINE BESYLATE
     Indication: HYPERTENSION
  22. ALLEGRA [Concomitant]
     Active Substance: FEXOFENADINE HYDROCHLORIDE
  23. CRESTOR [Suspect]
     Active Substance: ROSUVASTATIN CALCIUM
     Indication: BLOOD CHOLESTEROL
     Route: 048
  24. HUMALOG QUICK PEN 3 [Concomitant]
     Indication: DIABETES MELLITUS
  25. METFORMIN [Concomitant]
     Active Substance: METFORMIN HYDROCHLORIDE
     Indication: DIABETES MELLITUS
  26. VITAMIN C [Concomitant]
     Active Substance: ASCORBIC ACID

REACTIONS (2)
  - Nausea [Unknown]
  - Drug dispensing error [Unknown]
